FAERS Safety Report 24920294 (Version 2)
Quarter: 2025Q3

REPORT INFORMATION
  Report Type: Spontaneous
  Country: US (occurrence: US)
  Receive Date: 20250204
  Receipt Date: 20250810
  Transmission Date: 20251020
  Serious: No
  Sender: ALEXION PHARMACEUTICALS
  Company Number: US-AstraZeneca-CH-00796724A

PATIENT
  Age: 40 Year
  Sex: Male

DRUGS (1)
  1. FARXIGA [Suspect]
     Active Substance: DAPAGLIFLOZIN PROPANEDIOL

REACTIONS (6)
  - Fungal infection [Unknown]
  - Rash [Unknown]
  - Poor personal hygiene [Unknown]
  - Penile odour [Unknown]
  - Erythema [Unknown]
  - Pruritus [Unknown]
